FAERS Safety Report 24147927 (Version 2)
Quarter: 2024Q3

REPORT INFORMATION
  Report Type: Spontaneous
  Country: DE (occurrence: None)
  Receive Date: 20240729
  Receipt Date: 20240730
  Transmission Date: 20241016
  Serious: Yes (Life-Threatening, Hospitalization, Other)
  Sender: ASTRAZENECA
  Company Number: 2024A169157

PATIENT
  Age: 25080 Day
  Sex: Female

DRUGS (1)
  1. TAGRISSO [Suspect]
     Active Substance: OSIMERTINIB
     Indication: Lung cancer metastatic
     Route: 048
     Dates: start: 20240601, end: 20240716

REACTIONS (3)
  - Stevens-Johnson syndrome [Recovering/Resolving]
  - Pneumonitis [Unknown]
  - Colitis [Unknown]

NARRATIVE: CASE EVENT DATE: 20240615
